APPROVED DRUG PRODUCT: ISOPTIN
Active Ingredient: VERAPAMIL HYDROCHLORIDE
Strength: 2.5MG/ML **Federal Register determination that product was not discontinued or withdrawn for safety or effectiveness reasons**
Dosage Form/Route: INJECTABLE;INJECTION
Application: N018485 | Product #001
Applicant: MT ADAMS TECHNOLOGIES LLC
Approved: Approved Prior to Jan 1, 1982 | RLD: Yes | RS: No | Type: DISCN